FAERS Safety Report 18241345 (Version 2)
Quarter: 2020Q3

REPORT INFORMATION
  Report Type: Report from Study
  Country: None (occurrence: US)
  Receive Date: 20200908
  Receipt Date: 20200914
  Transmission Date: 20201103
  Serious: Yes (Hospitalization)
  Sender: FDA-Public Use
  Company Number: US-ABBVIE-20K-163-3554133-00

PATIENT
  Age: 81 Year
  Sex: Female

DRUGS (1)
  1. RINVOQ [Suspect]
     Active Substance: UPADACITINIB
     Indication: RHEUMATOID ARTHRITIS
     Route: 048
     Dates: start: 20200823, end: 2020

REACTIONS (3)
  - Mobility decreased [Unknown]
  - COVID-19 [Recovering/Resolving]
  - Middle insomnia [Unknown]

NARRATIVE: CASE EVENT DATE: 202008
